FAERS Safety Report 9249278 (Version 1)
Quarter: 2013Q2

REPORT INFORMATION
  Report Type: Spontaneous
  Country: US (occurrence: US)
  Receive Date: 20130422
  Receipt Date: 20130422
  Transmission Date: 20140414
  Serious: Yes (Other)
  Sender: FDA-Public Use
  Company Number: US-RB-050003-13

PATIENT
  Age: 26 Year
  Sex: Female

DRUGS (2)
  1. SUBOXONE FILM [Suspect]
     Indication: DRUG DEPENDENCE
     Dosage: SUBOXONE FILM
     Route: 060
     Dates: start: 201207
  2. NICOTINE [Concomitant]
     Indication: NICOTINE DEPENDENCE
     Dosage: 4 OR 5 CIGARETTES PER DAY
     Route: 055
     Dates: start: 2006

REACTIONS (3)
  - Off label use [Recovered/Resolved]
  - Exposure during pregnancy [Recovered/Resolved]
  - Meconium in amniotic fluid [Recovered/Resolved]
